FAERS Safety Report 6054467-6 (Version None)
Quarter: 2009Q1

REPORT INFORMATION
  Report Type: 
  Country: None (occurrence: None)
  Receive Date: 20090123
  Receipt Date: 20090123
  Transmission Date: 20090719
  Serious: Yes (Life-Threatening)
  Sender: FDA-Public Use
  Company Number: None

PATIENT
  Age: 74 Year
  Sex: Male
  Weight: 69.4003 kg

DRUGS (2)
  1. AMIODARONE HCL [Suspect]
     Indication: ABNORMAL SLEEP-RELATED EVENT
     Dosage: 200MG FOUR TIMES A DAY PO
     Route: 048
     Dates: start: 20080830, end: 20081118
  2. AMIODARONE HCL [Suspect]
     Indication: HEART RATE INCREASED
     Dosage: 200MG FOUR TIMES A DAY PO
     Route: 048
     Dates: start: 20080830, end: 20081118

REACTIONS (8)
  - ASTHENIA [None]
  - DIZZINESS [None]
  - HEART RATE DECREASED [None]
  - HYPOPHAGIA [None]
  - PAROSMIA [None]
  - RETCHING [None]
  - VOMITING [None]
  - WEIGHT DECREASED [None]
